FAERS Safety Report 8436995-9 (Version None)
Quarter: 2012Q2

REPORT INFORMATION
  Report Type: 
  Country: None (occurrence: None)
  Receive Date: 20120610
  Receipt Date: 20120610
  Transmission Date: 20120825
  Serious: No
  Sender: FDA-Public Use
  Company Number: None

PATIENT
  Age: 73 Year
  Sex: Female
  Weight: 63.5036 kg

DRUGS (2)
  1. SPIRIVA [Suspect]
     Indication: CHRONIC OBSTRUCTIVE PULMONARY DISEASE
     Dosage: 1 CAPSULE DAILY INHAL
     Route: 055
     Dates: start: 20120608, end: 20120609
  2. SPIRIVA [Suspect]
     Indication: SEASONAL ALLERGY
     Dosage: 1 CAPSULE DAILY INHAL
     Route: 055
     Dates: start: 20120608, end: 20120609

REACTIONS (1)
  - OESOPHAGEAL CANDIDIASIS [None]
